FAERS Safety Report 12188458 (Version 1)
Quarter: 2016Q1

REPORT INFORMATION
  Report Type: Spontaneous
  Country: JP (occurrence: JP)
  Receive Date: 20160317
  Receipt Date: 20160317
  Transmission Date: 20160526
  Serious: Yes (Other)
  Sender: FDA-Public Use
  Company Number: JP-TEVA-644208ISR

PATIENT
  Age: 1 Year
  Sex: Male

DRUGS (8)
  1. METHOTREXATE [Concomitant]
     Active Substance: METHOTREXATE
     Indication: CHEMOTHERAPY
     Dosage: FOUR 21- DAY CYCLES(DAY 1)
     Route: 024
  2. CYCLOPHOSPHAMIDE. [Concomitant]
     Active Substance: CYCLOPHOSPHAMIDE
     Indication: CHEMOTHERAPY
     Dosage: FOUR 21- DAY CYCLES(DAYS 1, 3, 5)
  3. CISPLATIN. [Concomitant]
     Active Substance: CISPLATIN
     Indication: CHEMOTHERAPY
     Dosage: FOUR 21- DAY CYCLES(DAYS 1-5)
  4. VP-16 [Suspect]
     Active Substance: ETOPOSIDE
     Indication: CHEMOTHERAPY
     Dosage: DAYS -7, -6, -5, -4
  5. L-PAM [Suspect]
     Active Substance: MELPHALAN
     Indication: CHEMOTHERAPY
     Dosage: DAYS -3, -2
  6. ETOPOSIDE. [Suspect]
     Active Substance: ETOPOSIDE
     Indication: CHEMOTHERAPY
     Dosage: FOUR 21- DAY CYCLES(DAYS 1-5)
  7. CARBOPLATIN. [Suspect]
     Active Substance: CARBOPLATIN
     Indication: CHEMOTHERAPY
     Dosage: FOUR 21- DAY CYCLES(DAY 4,5,6,7)
  8. VINCRISTINE [Concomitant]
     Active Substance: VINCRISTINE
     Indication: CHEMOTHERAPY
     Dosage: FOUR 21- DAY CYCLES (DAY 1)

REACTIONS (1)
  - Haemangioma [Unknown]
